FAERS Safety Report 4398406-2 (Version None)
Quarter: 2004Q3

REPORT INFORMATION
  Report Type: 
  Country: None (occurrence: None)
  Receive Date: 20040715
  Receipt Date: 20040709
  Transmission Date: 20050211
  Serious: Yes (Hospitalization, Other)
  Sender: FDA-Public Use
  Company Number: CH-MERCK-0407CHE00017

PATIENT
  Age: 72 Year
  Sex: Female
  Weight: 61 kg

DRUGS (7)
  1. ASCORBIC ACID AND VITAMIN B (UNSPECIFIED) [Concomitant]
     Route: 048
     Dates: start: 20040506, end: 20040526
  2. BISACODYL [Concomitant]
     Indication: CONSTIPATION
     Route: 048
     Dates: end: 20040527
  3. CALCIUM (UNSPECIFIED) AND VITAMIN D (UNSPECIFIED) [Concomitant]
     Route: 048
  4. DIPYRONE [Suspect]
     Route: 048
     Dates: end: 20040526
  5. FOLIC ACID [Concomitant]
     Route: 048
     Dates: start: 20040506, end: 20040526
  6. VIOXX [Suspect]
     Route: 048
     Dates: end: 20040526
  7. TRAZODONE HYDROCHLORIDE [Suspect]
     Indication: DEPRESSION
     Route: 048
     Dates: start: 20040415, end: 20040527

REACTIONS (2)
  - HEPATOCELLULAR DAMAGE [None]
  - JAUNDICE [None]
